FAERS Safety Report 7514242-X (Version None)
Quarter: 2011Q2

REPORT INFORMATION
  Report Type: 
  Country: None (occurrence: None)
  Receive Date: 20110601
  Receipt Date: 20110523
  Transmission Date: 20111010
  Serious: Yes (Hospitalization)
  Sender: FDA-Public Use
  Company Number: FR-AMGEN-FRASP2011027454

PATIENT
  Age: 64 Year
  Sex: Female

DRUGS (3)
  1. PREDNISONE [Concomitant]
     Dosage: 7.5 MG, 1X/DAY
     Dates: start: 20030101, end: 20101201
  2. METHOTREXATE [Suspect]
     Dosage: 10 MG, WEEKLY
     Dates: start: 20100101
  3. ENBREL [Suspect]
     Indication: PSORIATIC ARTHROPATHY
     Dosage: 50 MG, WEEKLY
     Route: 058
     Dates: start: 20030101, end: 20110405

REACTIONS (3)
  - SEGMENTED HYALINISING VASCULITIS [None]
  - PAIN [None]
  - SKIN ULCER [None]
